FAERS Safety Report 7908723-4 (Version None)
Quarter: 2011Q4

REPORT INFORMATION
  Report Type: 
  Country: None (occurrence: None)
  Receive Date: 20111111
  Receipt Date: 20111107
  Transmission Date: 20120403
  Serious: No
  Sender: FDA-Public Use
  Company Number: JP-AMGEN-JPNSP2011033192

PATIENT
  Sex: Female

DRUGS (3)
  1. METHOTREXATE SODIUM [Suspect]
     Dosage: UNK
  2. REMICADE [Concomitant]
     Dosage: UNK
  3. ENBREL [Suspect]
     Indication: RHEUMATOID ARTHRITIS
     Dosage: 50 MG, WEEKLY
     Route: 058
     Dates: start: 20110301

REACTIONS (3)
  - RHEUMATOID FACTOR INCREASED [None]
  - HEPATIC FUNCTION ABNORMAL [None]
  - DRUG INEFFECTIVE [None]
